FAERS Safety Report 24231478 (Version 8)
Quarter: 2025Q1

REPORT INFORMATION
  Report Type: Report from Study
  Country: CO (occurrence: CO)
  Receive Date: 20240821
  Receipt Date: 20250304
  Transmission Date: 20250408
  Serious: Yes (Death, Hospitalization, Other)
  Sender: AMGEN
  Company Number: CO-AMGEN-COLSL2024141607

PATIENT
  Age: 41 Year
  Sex: Female

DRUGS (3)
  1. VECTIBIX [Suspect]
     Active Substance: PANITUMUMAB
     Indication: Colorectal cancer metastatic
     Dosage: 375 MILLIGRAM, Q2WK, BIWEEKLY
     Route: 040
     Dates: start: 20240708
  2. VECTIBIX [Suspect]
     Active Substance: PANITUMUMAB
     Dosage: 100 MILLIGRAM, Q2WK, BIWEEKLY
     Route: 040
     Dates: start: 20240110, end: 20250110
  3. MINOCYCLINE [Suspect]
     Active Substance: MINOCYCLINE HYDROCHLORIDE
     Indication: Product used for unknown indication
     Route: 065

REACTIONS (13)
  - Colorectal cancer metastatic [Fatal]
  - Urinary tract infection [Not Recovered/Not Resolved]
  - Vulvovaginal dryness [Not Recovered/Not Resolved]
  - Scratch [Not Recovered/Not Resolved]
  - Nasal pruritus [Not Recovered/Not Resolved]
  - Pain in extremity [Not Recovered/Not Resolved]
  - Vomiting [Not Recovered/Not Resolved]
  - Rash [Not Recovered/Not Resolved]
  - Pruritus [Not Recovered/Not Resolved]
  - Acne [Unknown]
  - Anal rash [Not Recovered/Not Resolved]
  - Vulvovaginal rash [Not Recovered/Not Resolved]
  - Anorectal discomfort [Not Recovered/Not Resolved]

NARRATIVE: CASE EVENT DATE: 20240101
